FAERS Safety Report 19940511 (Version 1)
Quarter: 2021Q4

REPORT INFORMATION
  Report Type: Spontaneous
  Country: US (occurrence: US)
  Receive Date: 20211011
  Receipt Date: 20211011
  Transmission Date: 20220303
  Serious: No
  Sender: FDA-Public Use
  Company Number: US-PERRIGO-21US012336

PATIENT
  Sex: Female
  Weight: 58.96 kg

DRUGS (10)
  1. IMIQUIMOD [Suspect]
     Active Substance: IMIQUIMOD
     Indication: Extramammary Paget^s disease
     Dosage: 12.5 MG, TWICE WEEKLY
     Route: 061
     Dates: start: 2019, end: 202108
  2. ARMOUR THYROID [Concomitant]
     Active Substance: THYROID, PORCINE
     Indication: Hypothyroidism
     Dosage: UNKNOWN, UNKNOWN
     Route: 065
  3. ADEMETIONINE [Concomitant]
     Active Substance: ADEMETIONINE
     Indication: Pain in extremity
     Dosage: UNKNOWN, UNKNOWN
     Route: 065
  4. VITAMIN D NOS [Concomitant]
     Active Substance: VITAMIN D NOS
     Indication: Supplementation therapy
     Dosage: UNKNOWN, UNKNOWN
     Route: 065
  5. VITAMIN B [Concomitant]
     Active Substance: VITAMIN B
     Indication: Supplementation therapy
     Dosage: UNKNOWN, UNKNOWN
     Route: 065
  6. UNSPECIFIED INGREDIENT [Concomitant]
     Active Substance: UNSPECIFIED INGREDIENT
     Indication: Supplementation therapy
     Dosage: UNKNOWN, UNKNOWN
     Route: 065
  7. MAGNESIUM [Concomitant]
     Active Substance: MAGNESIUM
     Indication: Supplementation therapy
     Dosage: UNKNOWN, UNKNOWN
     Route: 065
  8. TRAMADOL [Concomitant]
     Active Substance: TRAMADOL
     Indication: Pain in extremity
     Dosage: UNKNOWN. QHS
     Route: 065
     Dates: start: 202107
  9. GABAPENTIN [Concomitant]
     Active Substance: GABAPENTIN
     Indication: Pain in extremity
     Dosage: UNKNOWN, UNKNOWN
     Route: 065
     Dates: start: 20210817, end: 202108
  10. PREDNISONE [Concomitant]
     Active Substance: PREDNISONE
     Indication: Pain in extremity
     Dosage: UNKNOWN, UNKNOWN
     Route: 065
     Dates: start: 2021, end: 2021

REACTIONS (2)
  - Application site swelling [Not Recovered/Not Resolved]
  - Off label use [Recovered/Resolved]

NARRATIVE: CASE EVENT DATE: 20190101
